FAERS Safety Report 8577089-1 (Version None)
Quarter: 2012Q3

REPORT INFORMATION
  Report Type: 
  Country: None (occurrence: None)
  Receive Date: 20120807
  Receipt Date: 20120730
  Transmission Date: 20120928
  Serious: Yes (Other)
  Sender: FDA-Public Use
  Company Number: US-BAYER-2012-077109

PATIENT
  Age: 47 Year
  Sex: Female

DRUGS (4)
  1. MIRENA [Suspect]
     Indication: MENORRHAGIA
  2. MIRENA [Suspect]
     Indication: CONTRACEPTION
     Dosage: 20 MCG/24HR, CONT
     Route: 015
     Dates: start: 20110101
  3. MIRENA [Suspect]
     Indication: OVARIAN CYST
  4. MIRENA [Suspect]
     Indication: DYSMENORRHOEA

REACTIONS (9)
  - ORGASM ABNORMAL [None]
  - STRESS [None]
  - VAGINAL HAEMORRHAGE [None]
  - PAIN [None]
  - PROCEDURAL PAIN [None]
  - DEVICE DISLOCATION [None]
  - EMOTIONAL DISTRESS [None]
  - ABDOMINAL PAIN [None]
  - ANXIETY [None]
